FAERS Safety Report 5627805-3 (Version None)
Quarter: 2008Q1

REPORT INFORMATION
  Report Type: 
  Country: None (occurrence: None)
  Receive Date: 20080215
  Receipt Date: 20080214
  Transmission Date: 20080703
  Serious: Yes (Hospitalization, Other)
  Sender: FDA-Public Use
  Company Number: D0056005A

PATIENT
  Age: 67 Year
  Sex: Male

DRUGS (19)
  1. AUGMENTIN '125' [Suspect]
     Indication: INFECTION PROPHYLAXIS
     Dosage: 2.2G THREE TIMES PER DAY
     Route: 042
     Dates: start: 20040919, end: 20040920
  2. NOVALGIN [Suspect]
     Indication: PAIN
     Route: 048
     Dates: start: 20040920, end: 20040923
  3. IBUPROFEN [Suspect]
     Indication: PAIN
     Dosage: 400MG THREE TIMES PER DAY
     Route: 048
     Dates: start: 20040920, end: 20040922
  4. OXYGESIC [Suspect]
     Indication: PAIN
     Route: 048
     Dates: start: 20040919, end: 20040922
  5. EMBOLEX [Suspect]
     Indication: THROMBOSIS PROPHYLAXIS
     Route: 058
     Dates: start: 20040919, end: 20040923
  6. BAYOTENSIN [Suspect]
     Indication: HYPERTENSION
     Route: 048
     Dates: start: 20040919, end: 20040924
  7. LOPIRIN [Suspect]
     Indication: HYPERTENSION
     Route: 048
     Dates: start: 20040919
  8. MIRTAZAPINE [Suspect]
     Indication: DEPRESSION
     Dosage: 30MG PER DAY
     Route: 048
     Dates: start: 20040922
  9. OMEPRAZOLE [Concomitant]
     Indication: PROPHYLAXIS
     Dosage: 20MG PER DAY
     Route: 048
     Dates: start: 20020201, end: 20040919
  10. TAVOR [Concomitant]
     Indication: DEPRESSION
     Dosage: 1MG PER DAY
     Route: 048
     Dates: start: 20030401, end: 20040919
  11. OXAZEPAM [Concomitant]
     Indication: DEPRESSION
     Dosage: 15MG PER DAY
     Route: 048
     Dates: start: 20030707, end: 20040919
  12. ASPIRIN [Concomitant]
     Indication: PROPHYLAXIS
     Dosage: 100MG PER DAY
     Route: 048
     Dates: start: 20020601, end: 20040919
  13. ULTRALAN [Concomitant]
     Dosage: 5MG PER DAY
     Route: 048
     Dates: start: 20031101, end: 20040921
  14. DOCITON [Concomitant]
     Indication: ARRHYTHMIA
     Route: 048
     Dates: start: 20030707, end: 20040924
  15. METHOTREXATE [Concomitant]
     Route: 048
     Dates: start: 19960101
  16. ASCORBIC ACID [Concomitant]
     Route: 048
     Dates: start: 20040919, end: 20040922
  17. ULCOGANT [Concomitant]
     Route: 048
     Dates: start: 20040930, end: 20040930
  18. LACTULOSE [Concomitant]
     Route: 048
     Dates: start: 20041001, end: 20041001
  19. RIOPAN [Concomitant]
     Route: 048
     Dates: start: 20041001, end: 20041001

REACTIONS (15)
  - BLISTER [None]
  - ERYTHEMA [None]
  - GENITAL EROSION [None]
  - LIP EROSION [None]
  - LIP SWELLING [None]
  - NASAL MUCOSAL DISORDER [None]
  - NIKOLSKY'S SIGN [None]
  - ORAL MUCOSA EROSION [None]
  - OVERDOSE [None]
  - PAIN OF SKIN [None]
  - PNEUMOCYSTIS JIROVECI PNEUMONIA [None]
  - PRURITUS [None]
  - PYREXIA [None]
  - SKIN DISCOLOURATION [None]
  - STEVENS-JOHNSON SYNDROME [None]
